FAERS Safety Report 6445104-7 (Version None)
Quarter: 2009Q4

REPORT INFORMATION
  Report Type: 
  Country: None (occurrence: None)
  Receive Date: 20091118
  Receipt Date: 20091114
  Transmission Date: 20100525
  Serious: Yes (Other)
  Sender: FDA-Public Use
  Company Number: US-BRISTOL-MYERS SQUIBB COMPANY-14859201

PATIENT

DRUGS (1)
  1. ERBITUX [Suspect]

REACTIONS (1)
  - MYOCARDIAL INFARCTION [None]
